FAERS Safety Report 5769043-X (Version None)
Quarter: 2008Q2

REPORT INFORMATION
  Report Type: 
  Country: None (occurrence: None)
  Receive Date: 20080612
  Receipt Date: 20080318
  Transmission Date: 20081010
  Serious: No
  Sender: FDA-Public Use
  Company Number: US-ABBOTT-08P-163-0443411-00

PATIENT
  Sex: Female
  Weight: 62.652 kg

DRUGS (3)
  1. HUMIRA [Suspect]
     Indication: CROHN'S DISEASE
     Route: 058
     Dates: start: 20071111, end: 20080301
  2. HUMIRA [Suspect]
     Dates: start: 20080301
  3. RANITIDINE HYDROCHLORIDE [Concomitant]
     Indication: DRUG USE FOR UNKNOWN INDICATION
     Route: 048

REACTIONS (5)
  - COUGH [None]
  - FATIGUE [None]
  - HEADACHE [None]
  - MALAISE [None]
  - PHARYNGEAL DISORDER [None]
